FAERS Safety Report 6633131-6 (Version None)
Quarter: 2010Q1

REPORT INFORMATION
  Report Type: 
  Country: None (occurrence: None)
  Receive Date: 20100312
  Receipt Date: 20100302
  Transmission Date: 20100710
  Serious: Yes (Other)
  Sender: FDA-Public Use
  Company Number: PHHY2010BR13102

PATIENT
  Sex: Male

DRUGS (2)
  1. GALVUS MET [Suspect]
     Dosage: 850/50 MG
  2. GALVUS MET COMBIPACK [Suspect]
     Dosage: 850/50 MG, 1 TABLET DAILY

REACTIONS (11)
  - ARRHYTHMIA [None]
  - ASTHENIA [None]
  - BLOOD GLUCOSE INCREASED [None]
  - CARDIAC FIBRILLATION [None]
  - CARDIOVERSION [None]
  - COLD SWEAT [None]
  - FEELING HOT [None]
  - HEART RATE IRREGULAR [None]
  - INCORRECT DOSE ADMINISTERED [None]
  - MALAISE [None]
  - PALLOR [None]
